FAERS Safety Report 8622705-9 (Version None)
Quarter: 2012Q3

REPORT INFORMATION
  Report Type: 
  Country: None (occurrence: None)
  Receive Date: 20120827
  Receipt Date: 20120815
  Transmission Date: 20120928
  Serious: Yes (Hospitalization)
  Sender: FDA-Public Use
  Company Number: US-BAYER-200930286NA

PATIENT
  Age: 30 Year
  Sex: Female
  Weight: 116 kg

DRUGS (13)
  1. PHENTERMINE [Concomitant]
     Dosage: UNK
     Dates: start: 20071201
  2. FLUCONAZOLE [Concomitant]
     Dosage: UNK
     Dates: start: 20080201
  3. NASACORT AQ [Concomitant]
     Indication: ACUTE SINUSITIS
     Dosage: 55 ?G/ACTUATION
     Route: 045
     Dates: start: 20080505
  4. ACETAMINOPHEN [Concomitant]
     Indication: HEADACHE
     Route: 065
  5. PHENTERMINE [Concomitant]
     Dosage: UNK
     Dates: start: 20080401
  6. AMOXICILLIN AND CLAVULANATE POTASSIUM [Concomitant]
     Dosage: UNK
     Dates: start: 20080101
  7. AVELOX [Concomitant]
     Dosage: UNK
     Dates: start: 20080201
  8. ALLERGY MEDICATION [Concomitant]
     Indication: SEASONAL ALLERGY
  9. YAZ [Suspect]
     Indication: CONTRACEPTION
     Route: 048
     Dates: start: 20070101
  10. YAZ [Suspect]
     Dosage: UNK UNK, QD
     Route: 048
     Dates: start: 20071214, end: 20080721
  11. DARVOCET [Concomitant]
     Indication: PAIN
     Dosage: 100/650
     Dates: start: 20080728
  12. CLARITIN [Concomitant]
     Indication: SINUSITIS
     Dosage: 10 MG, UNK
     Dates: start: 20080505
  13. YASMIN [Suspect]
     Indication: PRODUCT USED FOR UNKNOWN INDICATION
     Dosage: UNK UNK, QD
     Route: 048
     Dates: start: 20070101

REACTIONS (13)
  - INJURY [None]
  - MENTAL DISORDER [None]
  - PAIN [None]
  - PLEURITIC PAIN [None]
  - PNEUMONIA [None]
  - PULMONARY THROMBOSIS [None]
  - PULMONARY INFARCTION [None]
  - FATIGUE [None]
  - DYSPNOEA [None]
  - PULMONARY EMBOLISM [None]
  - MYOCARDIAL INFARCTION [None]
  - CHEST PAIN [None]
  - BACK PAIN [None]
